FAERS Safety Report 6237088-1 (Version None)
Quarter: 2009Q2

REPORT INFORMATION
  Report Type: 
  Country: None (occurrence: None)
  Receive Date: 20090619
  Receipt Date: 20090401
  Transmission Date: 20091009
  Serious: Yes (Hospitalization)
  Sender: FDA-Public Use
  Company Number: US-ASTRAZENECA-2009UW08316

PATIENT
  Age: 50 Year
  Sex: Male

DRUGS (3)
  1. SYMBICORT [Suspect]
     Route: 055
  2. PLAVIX [Concomitant]
  3. ASPIRIN [Concomitant]

REACTIONS (2)
  - HYPERSENSITIVITY [None]
  - RASH [None]
